FAERS Safety Report 8132796-X (Version None)
Quarter: 2012Q1

REPORT INFORMATION
  Report Type: 
  Country: None (occurrence: None)
  Receive Date: 20120213
  Receipt Date: 20120131
  Transmission Date: 20120608
  Serious: Yes (Congenital Anomaly)
  Sender: FDA-Public Use
  Company Number: GR-MERCK-1202USA00512B1

PATIENT

DRUGS (5)
  1. SULFASALAZINE [Concomitant]
     Route: 064
  2. AZATHIOPRINE [Concomitant]
     Route: 064
  3. FOSAMAX [Suspect]
     Route: 064
  4. CYCLOSPORINE [Concomitant]
     Route: 064
  5. HYDROXYCHLOROQUINE SULFATE [Concomitant]
     Route: 064

REACTIONS (3)
  - FOETAL EXPOSURE DURING PREGNANCY [None]
  - HEART DISEASE CONGENITAL [None]
  - KIDNEY MALFORMATION [None]
